FAERS Safety Report 25525582 (Version 2)
Quarter: 2025Q3

REPORT INFORMATION
  Report Type: Spontaneous
  Country: US (occurrence: US)
  Receive Date: 20250707
  Receipt Date: 20250724
  Transmission Date: 20251020
  Serious: No
  Sender: PFIZER
  Company Number: US-PFIZER INC-202500126804

PATIENT
  Age: 72 Year
  Sex: Female
  Weight: 81.65 kg

DRUGS (1)
  1. XELJANZ [Suspect]
     Active Substance: TOFACITINIB CITRATE
     Indication: Rheumatoid arthritis
     Dosage: 5 MG, 2X/DAY
     Route: 048
     Dates: start: 2018

REACTIONS (1)
  - Musculoskeletal stiffness [Recovered/Resolved]
